FAERS Safety Report 8890857 (Version 1)
Quarter: 2012Q4

REPORT INFORMATION
  Report Type: 
  Country: FR (occurrence: FR)
  Receive Date: 20121107
  Receipt Date: 20121107
  Transmission Date: 20130627
  Serious: Yes (Other)
  Sender: FDA-Public Use
  Company Number: PHHY2012FR101641

PATIENT

DRUGS (1)
  1. CLOZAPINE [Suspect]
     Dosage: Maternal exposure 300 mg
     Route: 064

REACTIONS (2)
  - Foetal heart rate abnormal [Unknown]
  - Foetal exposure during pregnancy [Unknown]
